FAERS Safety Report 13594056 (Version 1)
Quarter: 2017Q2

REPORT INFORMATION
  Report Type: Spontaneous
  Country: DE (occurrence: DE)
  Receive Date: 20170530
  Receipt Date: 20170530
  Transmission Date: 20170830
  Serious: Yes (Other)
  Sender: FDA-Public Use
  Company Number: DE-BRISTOL-MYERS SQUIBB COMPANY-BMS-2017-045522

PATIENT
  Sex: Male

DRUGS (1)
  1. NIVOLUMAB [Suspect]
     Active Substance: NIVOLUMAB
     Indication: NON-SMALL CELL LUNG CANCER
     Dosage: 3 MG/KG, UNK
     Route: 065

REACTIONS (5)
  - Hyponatraemia [Recovering/Resolving]
  - Hypophysitis [Recovering/Resolving]
  - Addison^s disease [Recovering/Resolving]
  - Adrenalitis [Recovering/Resolving]
  - Infection [Recovering/Resolving]
